FAERS Safety Report 5358672-3 (Version None)
Quarter: 2007Q2

REPORT INFORMATION
  Report Type: 
  Country: None (occurrence: None)
  Receive Date: 20070614
  Receipt Date: 20070614
  Transmission Date: 20071010
  Serious: Yes (Other)
  Sender: FDA-Public Use
  Company Number: None

PATIENT
  Sex: Female
  Weight: 73.4827 kg

DRUGS (6)
  1. REVLIMID [Suspect]
     Indication: MULTIPLE MYELOMA
     Dosage: 15MG DAILY 21D/28D PO
     Route: 048
  2. FAMOTIDINE [Concomitant]
  3. LOPRESSOR [Concomitant]
  4. METHOCARBAMOL [Concomitant]
  5. EFFEXOR [Concomitant]
  6. LISINOPRIL AND HYDROCHLOROTHIAZIDE [Concomitant]

REACTIONS (2)
  - MYALGIA [None]
  - SKIN DISCOLOURATION [None]
